FAERS Safety Report 24771050 (Version 1)
Quarter: 2024Q4

REPORT INFORMATION
  Report Type: Spontaneous
  Country: CN (occurrence: CN)
  Receive Date: 20241224
  Receipt Date: 20241224
  Transmission Date: 20250114
  Serious: Yes (Hospitalization)
  Sender: TAKEDA
  Company Number: CN-HUTCHMED LIMITED-HMP2024CN02817

PATIENT
  Age: 56 Year
  Sex: Male
  Weight: 56.5 kg

DRUGS (1)
  1. FRUQUINTINIB [Suspect]
     Active Substance: FRUQUINTINIB
     Indication: Colon cancer
     Dosage: 5 MILLIGRAM, QD
     Dates: start: 20241112, end: 20241210

REACTIONS (1)
  - White blood cell count decreased [Recovering/Resolving]

NARRATIVE: CASE EVENT DATE: 20241210
